FAERS Safety Report 8364340-6 (Version None)
Quarter: 2012Q2

REPORT INFORMATION
  Report Type: 
  Country: None (occurrence: None)
  Receive Date: 20120516
  Receipt Date: 20120508
  Transmission Date: 20120825
  Serious: No
  Sender: FDA-Public Use
  Company Number: US-ROXANE LABORATORIES, INC.-2012-RO-01208RO

PATIENT
  Sex: Female

DRUGS (4)
  1. AMLODIPINE BESYLATE [Concomitant]
     Dosage: 10 MG
  2. LEVOTHYROXINE SODIUM [Concomitant]
     Dosage: 150 MCG
  3. LOSARTAN POTASSIUM AND HYDROCHLOROTHIAZIDE [Suspect]
     Indication: HYPERTENSION
     Route: 048
  4. SIMVASTATIN [Concomitant]
     Dosage: 40 MG

REACTIONS (1)
  - JOINT SWELLING [None]
